FAERS Safety Report 8221770-0 (Version None)
Quarter: 2012Q1

REPORT INFORMATION
  Report Type: 
  Country: None (occurrence: None)
  Receive Date: 20120320
  Receipt Date: 20120320
  Transmission Date: 20120608
  Serious: Yes (Death)
  Sender: FDA-Public Use
  Company Number: None

PATIENT
  Sex: Male
  Weight: 106.14 kg

DRUGS (1)
  1. CLADRIBINE [Suspect]
     Indication: HAIRY CELL LEUKAEMIA
     Dosage: 8.5 MG/DAY
     Route: 041
     Dates: start: 20120306, end: 20120312

REACTIONS (7)
  - ANURIA [None]
  - HYPOTENSION [None]
  - PYREXIA [None]
  - MULTI-ORGAN FAILURE [None]
  - HYPOPERFUSION [None]
  - ASCITES [None]
  - TACHYCARDIA [None]
